FAERS Safety Report 8405070 (Version 3)
Quarter: 2013Q4

REPORT INFORMATION
  Report Type: Spontaneous
  Country: US (occurrence: US)
  Receive Date: 20120214
  Receipt Date: 20131002
  Transmission Date: 20140711
  Serious: Yes (Other)
  Sender: FDA-Public Use
  Company Number: US-UCBSA-028980

PATIENT
  Age: 27 Year
  Sex: Female
  Weight: 50 kg

DRUGS (1)
  1. CIMZIA [Suspect]
     Route: 058

REACTIONS (3)
  - Caesarean section [Unknown]
  - Premature delivery [Unknown]
  - Twin pregnancy [Unknown]
